FAERS Safety Report 9419213 (Version 2)
Quarter: 2013Q3

REPORT INFORMATION
  Report Type: Spontaneous
  Country: IN (occurrence: IN)
  Receive Date: 20130723
  Receipt Date: 20130807
  Transmission Date: 20140515
  Serious: Yes (Other)
  Sender: FDA-Public Use
  Company Number: AUR-APL-2013-05972

PATIENT
  Age: 34 Year
  Sex: Male

DRUGS (3)
  1. PAROXETINE (PAROXETINE) [Suspect]
     Indication: ANXIETY
  2. PAROXETINE (PAROXETINE) [Suspect]
     Indication: DEPRESSION
  3. CLONAZEPAM (CLONAZEPAM) (CLONAZEPAM) [Concomitant]

REACTIONS (4)
  - Headache [None]
  - Clonus [None]
  - Serotonin syndrome [None]
  - Toxicity to various agents [None]
